FAERS Safety Report 23343886 (Version 1)
Quarter: 2023Q4

REPORT INFORMATION
  Report Type: Spontaneous
  Country: ES (occurrence: ES)
  Receive Date: 20231227
  Receipt Date: 20231227
  Transmission Date: 20240110
  Serious: Yes (Hospitalization)
  Sender: FDA-Public Use
  Company Number: None

PATIENT
  Age: 77 Year
  Sex: Female

DRUGS (10)
  1. PAROXETINE [Suspect]
     Active Substance: PAROXETINE
     Indication: Depression
     Dosage: 10 MILLIGRAM, QD (10 MG EVERY 24 HOURS)
     Route: 048
     Dates: start: 20220520, end: 20230625
  2. LANSOPRAZOLE [Suspect]
     Active Substance: LANSOPRAZOLE
     Indication: Prophylaxis against gastrointestinal ulcer
     Dosage: 30 MILLIGRAM, QD (30 MG EVERY 24 HOURS)
     Route: 048
     Dates: start: 20211006, end: 20230623
  3. RAMIPRIL [Suspect]
     Active Substance: RAMIPRIL
     Indication: Hypertension
     Dosage: 5 MILLIGRAM, QD (5 MG EVERY 24 HOURS)
     Route: 048
     Dates: start: 20230109, end: 20230625
  4. ACETILCISTEINA SANDOZ [Concomitant]
     Indication: Respiratory tract infection
     Dosage: 600 MILLIGRAM, QD (600 MG EVERY 24 HOURS)
     Route: 048
     Dates: start: 20231124, end: 20231128
  5. FERBISOL [Concomitant]
     Indication: Product used for unknown indication
     Dosage: 1 DOSAGE FORM, QD (1 CAPSULE EVERY 24 HOURS AM)
     Route: 048
     Dates: start: 20231123
  6. QUETIAPINE FUMARATE [Concomitant]
     Active Substance: QUETIAPINE FUMARATE
     Indication: Presenile dementia
     Dosage: 150 MILLIGRAM, QD (150 MG DINNER)
     Route: 048
     Dates: start: 20230801
  7. LORAZEPAM [Concomitant]
     Active Substance: LORAZEPAM
     Indication: Presenile dementia
     Dosage: 2 MILLIGRAM, QD (2 MG EVERY 24 H, NIGHT)
     Route: 048
     Dates: start: 20230727
  8. FAMOTIDINA NORMON [Concomitant]
     Indication: Gastritis
     Dosage: 20 MILLIGRAM, QD (20 MG DINNER)
     Route: 048
     Dates: start: 20230629
  9. AMLODIPINE BESYLATE [Concomitant]
     Active Substance: AMLODIPINE BESYLATE
     Indication: Hypertension
     Dosage: 10 MILLIGRAM, QD (10 MG BREAKFAST)
     Route: 048
     Dates: start: 20230630
  10. QUETIAPINE [Concomitant]
     Active Substance: QUETIAPINE
     Indication: Presenile dementia
     Dosage: 25 MILLIGRAM, BID (25 MG BREAKFAST, DINNER)
     Route: 048
     Dates: start: 20230901

REACTIONS (1)
  - Inappropriate antidiuretic hormone secretion [Recovered/Resolved]

NARRATIVE: CASE EVENT DATE: 20230624
